FAERS Safety Report 14320917 (Version 3)
Quarter: 2019Q1

REPORT INFORMATION
  Report Type: Report from Study
  Country: GB (occurrence: GB)
  Receive Date: 20171223
  Receipt Date: 20190201
  Transmission Date: 20190417
  Serious: Yes (Hospitalization, Other)
  Sender: FDA-Public Use
  Company Number: GB-BRISTOL-MYERS SQUIBB COMPANY-BMS-2016-086137

PATIENT
  Sex: Female

DRUGS (2)
  1. CODEINE [Suspect]
     Active Substance: CODEINE
     Indication: PRODUCT USED FOR UNKNOWN INDICATION
     Dosage: UNK
     Route: 065
  2. ABATACEPT [Suspect]
     Active Substance: ABATACEPT
     Indication: RHEUMATOID ARTHRITIS
     Dosage: 125 MG, QWK
     Route: 058
     Dates: start: 20160803

REACTIONS (7)
  - Gastroenteritis [Unknown]
  - Lower respiratory tract infection [Unknown]
  - Chronic obstructive pulmonary disease [Unknown]
  - Non-cardiac chest pain [Unknown]
  - Malaise [Unknown]
  - Feeling abnormal [Unknown]
  - Influenza [Unknown]
